FAERS Safety Report 22306939 (Version 6)
Quarter: 2024Q2

REPORT INFORMATION
  Report Type: Report from Study
  Country: CL (occurrence: CL)
  Receive Date: 20230511
  Receipt Date: 20240507
  Transmission Date: 20240716
  Serious: Yes (Other)
  Sender: FDA-Public Use
  Company Number: CL-002147023-NVSC2023CL104343

PATIENT
  Age: 67 Year
  Sex: Male

DRUGS (7)
  1. COSENTYX [Suspect]
     Active Substance: SECUKINUMAB
     Indication: Psoriatic arthropathy
     Dosage: 150 MG, QW (1ST DOSE)
     Route: 058
     Dates: start: 20230413
  2. COSENTYX [Suspect]
     Active Substance: SECUKINUMAB
     Dosage: UNK (2ND DOSE)
     Route: 065
     Dates: start: 20230420
  3. COSENTYX [Suspect]
     Active Substance: SECUKINUMAB
     Dosage: UNK (3RD DOSE)
     Route: 065
     Dates: start: 20230427
  4. COSENTYX [Suspect]
     Active Substance: SECUKINUMAB
     Dosage: UNK (4TH DOSE)
     Route: 065
     Dates: start: 20230504
  5. COSENTYX [Suspect]
     Active Substance: SECUKINUMAB
     Dosage: 150 MG (5TH DOSE)
     Route: 065
     Dates: start: 20230511
  6. COSENTYX [Suspect]
     Active Substance: SECUKINUMAB
     Dosage: UNK (6TH DOSE) (DOUBLE DOSE)
     Route: 065
     Dates: start: 20230608
  7. COSENTYX [Suspect]
     Active Substance: SECUKINUMAB
     Dosage: 300 MG, QMO
     Route: 058
     Dates: start: 20230413, end: 20240314

REACTIONS (11)
  - Bradycardia [Unknown]
  - Drug ineffective [Not Recovered/Not Resolved]
  - Red blood cell count decreased [Unknown]
  - Haemoglobin decreased [Unknown]
  - Haematocrit decreased [Unknown]
  - Red blood cell sedimentation rate increased [Unknown]
  - Neutrophil count decreased [Unknown]
  - Lymphocyte count increased [Unknown]
  - C-reactive protein increased [Unknown]
  - Anisocytosis [Unknown]
  - Inflammation [Unknown]

NARRATIVE: CASE EVENT DATE: 20230511
